FAERS Safety Report 17656845 (Version 1)
Quarter: 2020Q2

REPORT INFORMATION
  Report Type: Spontaneous
  Country: US (occurrence: US)
  Receive Date: 20200410
  Receipt Date: 20200410
  Transmission Date: 20200713
  Serious: No
  Sender: FDA-Public Use
  Company Number: US-PERRIGO-19US011188

PATIENT
  Sex: Male
  Weight: 83.9 kg

DRUGS (1)
  1. PSEUDOEPHEDRINE HYDROCHLORIDE. [Suspect]
     Active Substance: PSEUDOEPHEDRINE HYDROCHLORIDE
     Indication: SINUS CONGESTION
     Dosage: 120 MG, QD, PRN
     Route: 048

REACTIONS (2)
  - Insomnia [Recovered/Resolved]
  - Pollakiuria [Recovered/Resolved]
